FAERS Safety Report 16819562 (Version 18)
Quarter: 2022Q1

REPORT INFORMATION
  Report Type: Report from Study
  Country: FR (occurrence: None)
  Receive Date: 20190917
  Receipt Date: 20220311
  Transmission Date: 20220423
  Serious: Yes (Hospitalization)
  Sender: FDA-Public Use
  Company Number: FR-EISAI MEDICAL RESEARCH-EC-2019-062248

PATIENT
  Age: 77 Year
  Sex: Female
  Weight: 52.5 kg

DRUGS (16)
  1. LENVATINIB [Suspect]
     Active Substance: LENVATINIB
     Indication: Malignant melanoma stage III
     Route: 048
     Dates: start: 20190806, end: 20190909
  2. LENVATINIB [Suspect]
     Active Substance: LENVATINIB
     Indication: Malignant melanoma stage IV
  3. PEMBROLIZUMAB [Suspect]
     Active Substance: PEMBROLIZUMAB
     Indication: Malignant melanoma stage III
     Route: 041
     Dates: start: 20190806, end: 20190806
  4. PEMBROLIZUMAB [Suspect]
     Active Substance: PEMBROLIZUMAB
     Indication: Malignant melanoma stage IV
     Route: 041
     Dates: start: 20190909, end: 20190909
  5. ESCITALOPRAM OXALATE [Suspect]
     Active Substance: ESCITALOPRAM OXALATE
     Indication: Depression
     Dates: start: 201901, end: 20190909
  6. QUINAPRIL HYDROCHLORIDE [Concomitant]
     Active Substance: QUINAPRIL HYDROCHLORIDE
     Dates: start: 201907
  7. XARELTO [Concomitant]
     Active Substance: RIVAROXABAN
     Dates: start: 201907
  8. XARELTO [Concomitant]
     Active Substance: RIVAROXABAN
  9. XARELTO [Concomitant]
     Active Substance: RIVAROXABAN
  10. CHOLECALCIFEROL [Concomitant]
     Active Substance: CHOLECALCIFEROL
     Dates: start: 201901
  11. CHOLECALCIFEROL [Concomitant]
     Active Substance: CHOLECALCIFEROL
  12. CHOLECALCIFEROL [Concomitant]
     Active Substance: CHOLECALCIFEROL
  13. HUMALOG [Concomitant]
     Active Substance: INSULIN LISPRO
     Dates: start: 201901
  14. HUMALOG [Concomitant]
     Active Substance: INSULIN LISPRO
  15. HUMALOG [Concomitant]
     Active Substance: INSULIN LISPRO
  16. TRESIBA [Concomitant]
     Active Substance: INSULIN DEGLUDEC
     Dates: start: 20190825, end: 20191112

REACTIONS (3)
  - Hypoxia [Recovered/Resolved]
  - Electrocardiogram QT prolonged [Recovered/Resolved]
  - Pyrexia [Recovered/Resolved]

NARRATIVE: CASE EVENT DATE: 20190909
